FAERS Safety Report 4289923-4 (Version None)
Quarter: 2004Q1

REPORT INFORMATION
  Report Type: 
  Country: None (occurrence: None)
  Receive Date: 20040209
  Receipt Date: 20040130
  Transmission Date: 20041129
  Serious: Yes (Death)
  Sender: FDA-Public Use
  Company Number: 200411512GDDC

PATIENT
  Age: 67 Year
  Sex: Male

DRUGS (2)
  1. LOVENOX [Suspect]
     Indication: MYOCARDIAL INFARCTION
     Route: 058
     Dates: start: 20030511, end: 20030512
  2. UNKNOWN DRUG [Concomitant]

REACTIONS (3)
  - MEDICATION ERROR [None]
  - PULMONARY EMBOLISM [None]
  - THROMBOSIS [None]
